FAERS Safety Report 6930116-7 (Version None)
Quarter: 2010Q3

REPORT INFORMATION
  Report Type: 
  Country: None (occurrence: None)
  Receive Date: 20100818
  Receipt Date: 20090824
  Transmission Date: 20110219
  Serious: No
  Sender: FDA-Public Use
  Company Number: US-ASTRAZENECA-2009SE09609

PATIENT
  Sex: Female

DRUGS (1)
  1. IRESSA [Suspect]
     Route: 048
     Dates: start: 20040101

REACTIONS (2)
  - ACNE [None]
  - SKIN IRRITATION [None]
